FAERS Safety Report 17686126 (Version 1)
Quarter: 2020Q2

REPORT INFORMATION
  Report Type: Report from Study
  Country: GT (occurrence: GT)
  Receive Date: 20200420
  Receipt Date: 20200420
  Transmission Date: 20200714
  Serious: Yes (Death)
  Sender: FDA-Public Use
  Company Number: GT-BAYER-2019-219844

PATIENT
  Age: 77 Year
  Sex: Male

DRUGS (1)
  1. NEXAVAR [Suspect]
     Active Substance: SORAFENIB
     Indication: HEPATOCELLULAR CARCINOMA
     Dosage: 800 MG, QD (400 MG IN THE MORNING AND 400 MG AT NIGHT)
     Dates: start: 20191029, end: 20200330

REACTIONS (6)
  - Feeling abnormal [Recovering/Resolving]
  - Fatigue [None]
  - Decreased appetite [Recovering/Resolving]
  - Peripheral coldness [Recovering/Resolving]
  - Hepatic failure [Fatal]
  - Fatigue [Not Recovered/Not Resolved]

NARRATIVE: CASE EVENT DATE: 20191115
